FAERS Safety Report 10795943 (Version 1)
Quarter: 2015Q1

REPORT INFORMATION
  Report Type: Spontaneous
  Country: US (occurrence: US)
  Receive Date: 20150216
  Receipt Date: 20150216
  Transmission Date: 20150721
  Serious: No
  Sender: FDA-Public Use
  Company Number: US-ALVOGEN-2015AL000014

PATIENT
  Age: 69 Year
  Sex: Female
  Weight: 65.32 kg

DRUGS (9)
  1. PERCOCET [Suspect]
     Active Substance: ACETAMINOPHEN\OXYCODONE HYDROCHLORIDE
     Indication: PAIN
     Route: 048
     Dates: start: 20141219, end: 20141226
  2. COLCRYS [Concomitant]
     Active Substance: COLCHICINE
     Indication: GOUT
     Dates: start: 1993
  3. CYTOMEL [Concomitant]
     Active Substance: LIOTHYRONINE SODIUM
     Indication: THYROID DISORDER
     Dates: start: 2003
  4. NEXIUM [Concomitant]
     Active Substance: ESOMEPRAZOLE MAGNESIUM
     Indication: GASTROOESOPHAGEAL REFLUX DISEASE
  5. NEXIUM [Concomitant]
     Active Substance: ESOMEPRAZOLE MAGNESIUM
     Indication: ULCER
  6. PANTOPRAZOLE [Concomitant]
     Active Substance: PANTOPRAZOLE SODIUM
     Indication: CARDIAC DISORDER
  7. PROBENECID. [Concomitant]
     Active Substance: PROBENECID
     Indication: GOUT
     Route: 048
  8. RYTHMOL [Concomitant]
     Active Substance: PROPAFENONE HYDROCHLORIDE
     Indication: CARDIAC DISORDER
  9. VALIUM [Concomitant]
     Active Substance: DIAZEPAM
     Indication: BACK INJURY
     Dates: start: 1960

REACTIONS (1)
  - Drug ineffective [Not Recovered/Not Resolved]
